FAERS Safety Report 8348705-4 (Version None)
Quarter: 2012Q2

REPORT INFORMATION
  Report Type: 
  Country: None (occurrence: None)
  Receive Date: 20120510
  Receipt Date: 20120425
  Transmission Date: 20120825
  Serious: Yes (Death, Other)
  Sender: FDA-Public Use
  Company Number: US-RANBAXY-2012US-56019

PATIENT
  Sex: Female

DRUGS (1)
  1. RISPERIDONE [Suspect]
     Indication: DEMENTIA ALZHEIMER'S TYPE
     Dosage: UNK, UNK

REACTIONS (6)
  - OFF LABEL USE [None]
  - MANIA [None]
  - DRUG INEFFECTIVE FOR UNAPPROVED INDICATION [None]
  - AGGRESSION [None]
  - AGITATION [None]
  - HOSTILITY [None]
